FAERS Safety Report 6399818-8 (Version None)
Quarter: 2009Q4

REPORT INFORMATION
  Report Type: 
  Country: None (occurrence: None)
  Receive Date: 20091007
  Receipt Date: 20091007
  Transmission Date: 20100525
  Serious: No
  Sender: FDA-Public Use
  Company Number: None

PATIENT
  Sex: Male
  Weight: 162 kg

DRUGS (22)
  1. LIPITOR [Suspect]
     Indication: ACUTE CORONARY SYNDROME
     Dosage: 40MG DAILY ORAL
     Route: 048
     Dates: start: 20090328
  2. ALBUTEROL [Concomitant]
  3. AMPICILLIN AND SULBACTAM [Concomitant]
  4. ASPIRIN [Concomitant]
  5. ENOXAPARIN SODIUM [Concomitant]
  6. ESOMEPRAZOLE [Concomitant]
  7. FUROSEMIDE [Concomitant]
  8. HALOPERIDOL [Concomitant]
  9. HYDROCHLOROTHIAZIDE [Concomitant]
  10. IPRATROPIUM NEBS [Concomitant]
  11. LABETALOL HCL [Concomitant]
  12. LEVOFOXACIN [Concomitant]
  13. NAFCILLIN [Concomitant]
  14. POTASSIUM CHLORIDE [Concomitant]
  15. SENNA [Concomitant]
  16. VANCOMYCIN [Concomitant]
  17. ACETAMINOPHEN [Concomitant]
  18. ACETAMINOPHEN W/ PROPOXYPHENE HCL [Concomitant]
  19. ALUMINUM HYDROXIDE/MAGNESIUM HYDROXIDE [Concomitant]
  20. METOCLOPRAMIDE [Concomitant]
  21. PROMETHAZINE [Concomitant]
  22. PROPOFOL [Concomitant]

REACTIONS (1)
  - RHABDOMYOLYSIS [None]
